FAERS Safety Report 22278813 (Version 2)
Quarter: 2023Q2

REPORT INFORMATION
  Report Type: Report from Study
  Country: JP (occurrence: JP)
  Receive Date: 20230503
  Receipt Date: 20230608
  Transmission Date: 20230721
  Serious: Yes (Other)
  Sender: FDA-Public Use
  Company Number: JP-JNJFOC-20230323444

PATIENT
  Age: 78 Year
  Sex: Female

DRUGS (1)
  1. IMBRUVICA [Suspect]
     Active Substance: IBRUTINIB
     Indication: Chronic lymphocytic leukaemia recurrent
     Route: 048
     Dates: start: 20200820

REACTIONS (5)
  - Cataract [Recovered/Resolved]
  - Mass [Unknown]
  - Stomatitis [Recovered/Resolved]
  - Hypoaesthesia [Not Recovered/Not Resolved]
  - Angular cheilitis [Unknown]

NARRATIVE: CASE EVENT DATE: 20200916
